FAERS Safety Report 5224350-4 (Version None)
Quarter: 2007Q1

REPORT INFORMATION
  Report Type: 
  Country: None (occurrence: None)
  Receive Date: 20070130
  Receipt Date: 20070119
  Transmission Date: 20070707
  Serious: Yes (Other)
  Sender: FDA-Public Use
  Company Number: US-PFIZER INC-2007005969

PATIENT
  Sex: Female
  Weight: 58.5 kg

DRUGS (5)
  1. CHANTIX [Suspect]
     Indication: EX-SMOKER
  2. CRESTOR [Concomitant]
  3. ZOLOFT [Concomitant]
  4. GLUCOSAMINE [Concomitant]
  5. VITAMIN CAP [Concomitant]

REACTIONS (3)
  - ASTHENIA [None]
  - FOOD POISONING [None]
  - NIGHTMARE [None]
